FAERS Safety Report 4702431-9 (Version None)
Quarter: 2005Q2

REPORT INFORMATION
  Report Type: 
  Country: None (occurrence: None)
  Receive Date: 20050629
  Receipt Date: 20050620
  Transmission Date: 20051028
  Serious: Yes (Other)
  Sender: FDA-Public Use
  Company Number: PHEH2005US06924

PATIENT
  Age: 57 Year
  Sex: Female

DRUGS (1)
  1. ZOMETA [Suspect]
     Indication: MULTIPLE MYELOMA
     Dates: start: 20010101

REACTIONS (4)
  - ASEPTIC NECROSIS BONE [None]
  - ENDODONTIC PROCEDURE [None]
  - FISTULA [None]
  - TOOTH EXTRACTION [None]
